FAERS Safety Report 7641792-8 (Version None)
Quarter: 2011Q3

REPORT INFORMATION
  Report Type: 
  Country: None (occurrence: None)
  Receive Date: 20110728
  Receipt Date: 20110715
  Transmission Date: 20111222
  Serious: Yes (Other)
  Sender: FDA-Public Use
  Company Number: US-JNJFOC-20110707124

PATIENT
  Age: 47 Year
  Sex: Female
  Weight: 49.9 kg

DRUGS (8)
  1. BENADRYL [Suspect]
     Route: 042
  2. XANAX [Concomitant]
     Indication: DEPRESSION
     Route: 065
  3. PRISTIQ [Concomitant]
     Indication: DEPRESSION
     Route: 065
  4. BENADRYL [Suspect]
     Indication: MIGRAINE
     Route: 042
     Dates: start: 20110713, end: 20110713
  5. EVAMIST [Concomitant]
     Indication: HORMONE REPLACEMENT THERAPY
     Route: 065
  6. LISINOPRIL [Concomitant]
     Indication: HYPERTENSION
     Route: 065
  7. PROPRANOLOL [Concomitant]
     Indication: HYPERTENSION
     Route: 065
  8. EXCEDRIN (MIGRAINE) [Concomitant]
     Indication: MIGRAINE
     Route: 065

REACTIONS (4)
  - HEART RATE INCREASED [None]
  - GAIT DISTURBANCE [None]
  - ANXIETY [None]
  - HYPERSENSITIVITY [None]
